FAERS Safety Report 6780401-7 (Version None)
Quarter: 2010Q2

REPORT INFORMATION
  Report Type: 
  Country: None (occurrence: None)
  Receive Date: 20100619
  Receipt Date: 20100615
  Transmission Date: 20101027
  Serious: Yes (Hospitalization, Other)
  Sender: FDA-Public Use
  Company Number: US-RB-003670-10

PATIENT
  Age: 55 Year
  Sex: Female

DRUGS (2)
  1. SUBOXONE [Suspect]
     Route: 060
     Dates: start: 20080101
  2. PREDNISONE [Suspect]
     Dosage: DOSING DETAILS UNKNOWN
     Route: 065
     Dates: start: 20100101, end: 20100501

REACTIONS (10)
  - CELLULITIS [None]
  - COUGH [None]
  - DYSPNOEA [None]
  - FEELING JITTERY [None]
  - HAEMATEMESIS [None]
  - JOINT DISLOCATION [None]
  - LIMB INJURY [None]
  - LOWER RESPIRATORY TRACT INFECTION [None]
  - PNEUMONIA [None]
  - VOMITING [None]
